FAERS Safety Report 11385839 (Version 1)
Quarter: 2015Q3

REPORT INFORMATION
  Report Type: Spontaneous
  Country: US (occurrence: None)
  Receive Date: 20150813
  Receipt Date: 20150813
  Transmission Date: 20151125
  Serious: No
  Sender: FDA-Public Use
  Company Number: None

PATIENT
  Age: 61 Year
  Sex: Male

DRUGS (1)
  1. HUMIRA [Suspect]
     Active Substance: ADALIMUMAB
     Indication: ARTHRITIS
     Dosage: 1 PEN (40MG)?EVERY OTHER WEEK?SUBCUTANEOUS
     Route: 058

REACTIONS (1)
  - Chapped lips [None]

NARRATIVE: CASE EVENT DATE: 20150601
